FAERS Safety Report 5468622-7 (Version None)
Quarter: 2007Q3

REPORT INFORMATION
  Report Type: 
  Country: None (occurrence: None)
  Receive Date: 20070820
  Receipt Date: 20070511
  Transmission Date: 20080115
  Serious: No
  Sender: FDA-Public Use
  Company Number: WAES 0704USA03434

PATIENT
  Age: 74 Year
  Sex: Female

DRUGS (7)
  1. JANUVIA [Suspect]
     Indication: TYPE 2 DIABETES MELLITUS
     Dosage: 100 MG DAILY PO
     Route: 048
     Dates: start: 20070301, end: 20070502
  2. CELEBREX [Concomitant]
  3. KLONOPIN [Concomitant]
  4. DIGOXIN [Concomitant]
  5. GLYBURIDE [Concomitant]
  6. PROPRANOLOL HYDROCHLORIDE [Concomitant]
  7. WARFARIN SODIUM [Concomitant]

REACTIONS (2)
  - EMPHYSEMA [None]
  - WEIGHT INCREASED [None]
